FAERS Safety Report 6557869-4 (Version None)
Quarter: 2010Q1

REPORT INFORMATION
  Report Type: 
  Country: None (occurrence: None)
  Receive Date: 20100129
  Receipt Date: 20100122
  Transmission Date: 20100710
  Serious: Yes (Other)
  Sender: FDA-Public Use
  Company Number: FR-ASTRAZENECA-2010SE03287

PATIENT
  Age: 70 Year
  Sex: Male

DRUGS (1)
  1. CRESTOR [Suspect]
     Route: 048
     Dates: start: 20090101

REACTIONS (1)
  - MYASTHENIA GRAVIS [None]
